FAERS Safety Report 16945087 (Version 1)
Quarter: 2019Q4

REPORT INFORMATION
  Report Type: Spontaneous
  Country: US (occurrence: US)
  Receive Date: 20190829
  Receipt Date: 20190829
  Transmission Date: 20200122
  Serious: Yes (Life-Threatening, Hospitalization)
  Sender: FDA-Public Use
  Company Number: None

PATIENT
  Age: 64 Year
  Sex: Female
  Weight: 70.31 kg

DRUGS (9)
  1. CALCIUM [Concomitant]
     Active Substance: CALCIUM
  2. MAGNESIUM [Concomitant]
     Active Substance: MAGNESIUM
  3. SMZ-TMP D5800-160MG TAB [Suspect]
     Active Substance: SULFAMETHOXAZOLE\TRIMETHOPRIM
     Indication: IATROGENIC INFECTION
     Dosage: ?          QUANTITY:2 PILLS;OTHER FREQUENCY:BID QD 12 HR APART;?
     Route: 048
     Dates: start: 20181115, end: 20181122
  4. VITAMIN C [Concomitant]
     Active Substance: ASCORBIC ACID
  5. GLUESOSOMINE [Concomitant]
  6. COENZYME Q10 [Concomitant]
     Active Substance: UBIDECARENONE
  7. FUREOSMIDE [Concomitant]
  8. SMZ-TMP D5800-160MG TAB [Suspect]
     Active Substance: SULFAMETHOXAZOLE\TRIMETHOPRIM
     Indication: VACCINATION COMPLICATION
     Dosage: ?          QUANTITY:2 PILLS;OTHER FREQUENCY:BID QD 12 HR APART;?
     Route: 048
     Dates: start: 20181115, end: 20181122
  9. VIT D [Concomitant]
     Active Substance: VITAMIN D NOS

REACTIONS (6)
  - Thirst [None]
  - Nausea [None]
  - Pyrexia [None]
  - Adverse drug reaction [None]
  - Rash [None]
  - Renal failure [None]

NARRATIVE: CASE EVENT DATE: 20181119
